FAERS Safety Report 7878930-8 (Version None)
Quarter: 2011Q4

REPORT INFORMATION
  Report Type: 
  Country: None (occurrence: None)
  Receive Date: 20111101
  Receipt Date: 20111025
  Transmission Date: 20120403
  Serious: Yes (Other)
  Sender: FDA-Public Use
  Company Number: AT-BAYER-2011-104312

PATIENT
  Age: 36 Year
  Sex: Female
  Weight: 40 kg

DRUGS (1)
  1. BETASERON [Suspect]
     Indication: ACUTE DISSEMINATED ENCEPHALOMYELITIS
     Dosage: UNK
     Route: 058
     Dates: start: 20110401

REACTIONS (6)
  - HEADACHE [None]
  - DIZZINESS [None]
  - TREMOR [None]
  - RESPIRATORY DISTRESS [None]
  - LIP SWELLING [None]
  - FLUSHING [None]
